FAERS Safety Report 9285204 (Version 1)
Quarter: 2013Q2

REPORT INFORMATION
  Report Type: Spontaneous
  Country: US (occurrence: US)
  Receive Date: 20130513
  Receipt Date: 20130513
  Transmission Date: 20140414
  Serious: No
  Sender: FDA-Public Use
  Company Number: US-BAYER-2013-057653

PATIENT
  Age: 45 Year
  Sex: Female

DRUGS (8)
  1. BETASERON [Suspect]
     Indication: MULTIPLE SCLEROSIS
     Dosage: UNK UNK, QOD
     Route: 058
     Dates: start: 2005
  2. DIVALPROEX [Concomitant]
     Dosage: 125 MG, UNK
  3. BUPROPION [Concomitant]
     Dosage: 100 MG, UNK
  4. BACLOFEN [Concomitant]
     Dosage: 10 MG, UNK
  5. TIZANIDINE [Concomitant]
     Dosage: 2 MG, UNK
  6. ENABLEX [Concomitant]
     Dosage: 7.5 MG, UNK
  7. VITAMIN D [Concomitant]
     Dosage: 400 U, UNK
  8. TYLENOL [PARACETAMOL] [Concomitant]
     Dosage: 500 MG, UNK

REACTIONS (2)
  - Injection site atrophy [Unknown]
  - Injection site induration [Unknown]
